FAERS Safety Report 5533548-7 (Version None)
Quarter: 2007Q4

REPORT INFORMATION
  Report Type: 
  Country: None (occurrence: None)
  Receive Date: 20071120
  Receipt Date: 20070912
  Transmission Date: 20080405
  Serious: No
  Sender: FDA-Public Use
  Company Number: WAES 0709USA01826

PATIENT
  Age: 71 Year
  Sex: Female

DRUGS (4)
  1. JANUVIA [Suspect]
     Indication: DIABETES MELLITUS
     Dosage: 100 MG/DAILY/PO ; 200 MG/DAILY/PO
     Route: 048
     Dates: start: 20070911, end: 20070911
  2. JANUVIA [Suspect]
     Indication: DIABETES MELLITUS
     Dosage: 100 MG/DAILY/PO ; 200 MG/DAILY/PO
     Route: 048
     Dates: start: 20070829
  3. LOTREL [Concomitant]
  4. PROTONIX [Concomitant]

REACTIONS (3)
  - DRUG INEFFECTIVE [None]
  - HEADACHE [None]
  - OVERDOSE [None]
